FAERS Safety Report 7198754-7 (Version None)
Quarter: 2010Q4

REPORT INFORMATION
  Report Type: 
  Country: None (occurrence: None)
  Receive Date: 20101227
  Receipt Date: 20100423
  Transmission Date: 20110411
  Serious: No
  Sender: FDA-Public Use
  Company Number: US-ABBOTT-10P-163-0641331-00

PATIENT
  Sex: Male

DRUGS (4)
  1. LUPRON DEPOT [Suspect]
     Indication: PROSTATE CANCER
     Route: 050
     Dates: end: 20100201
  2. LUPRON DEPOT [Suspect]
     Indication: BLOOD TESTOSTERONE INCREASED
  3. TRELSTAR [Suspect]
     Indication: PROSTATE CANCER
     Route: 050
     Dates: start: 20100201
  4. TRELSTAR [Suspect]
     Indication: BLOOD TESTOSTERONE INCREASED

REACTIONS (2)
  - BLOOD TESTOSTERONE INCREASED [None]
  - PAIN [None]
